FAERS Safety Report 6854270-0 (Version None)
Quarter: 2010Q3

REPORT INFORMATION
  Report Type: 
  Country: None (occurrence: None)
  Receive Date: 20100717
  Receipt Date: 20080101
  Transmission Date: 20110219
  Serious: No
  Sender: FDA-Public Use
  Company Number: US-PFIZER INC-2008001270

PATIENT
  Sex: Male

DRUGS (10)
  1. CHANTIX [Suspect]
  2. EFFEXOR [Concomitant]
  3. ALLOPURINOL [Concomitant]
  4. DOXYCYCLINE [Concomitant]
  5. VALSARTAN [Concomitant]
  6. PRILOSEC [Concomitant]
  7. TOPROL-XL [Concomitant]
  8. LIPITOR [Concomitant]
  9. TAMSULOSIN HYDROCHLORIDE [Concomitant]
  10. ACETYLSALICYLIC ACID [Concomitant]

REACTIONS (1)
  - DIZZINESS [None]
